FAERS Safety Report 4993708-0 (Version None)
Quarter: 2006Q2

REPORT INFORMATION
  Report Type: 
  Country: None (occurrence: None)
  Receive Date: 20060503
  Receipt Date: 20060503
  Transmission Date: 20061013
  Serious: Yes (Other)
  Sender: FDA-Public Use
  Company Number: None

PATIENT
  Sex: Female
  Weight: 72.8 kg

DRUGS (2)
  1. GEMCITABINE [Suspect]
     Indication: OVARIAN CANCER
     Dosage: 1080 MG D1+8 OF 21 DAY IV
     Route: 042
     Dates: start: 20060407, end: 20060414
  2. CAPECITABINE 500 MG/M2 [Suspect]
     Indication: OVARIAN CANCER
     Dosage: 900 MG BID X 14 DAYS PO
     Route: 048
     Dates: start: 20060407, end: 20060421

REACTIONS (1)
  - NEUTROPHIL COUNT DECREASED [None]
